FAERS Safety Report 13262649 (Version 1)
Quarter: 2017Q1

REPORT INFORMATION
  Report Type: Report from Study
  Country: CL (occurrence: CL)
  Receive Date: 20170223
  Receipt Date: 20170223
  Transmission Date: 20170428
  Serious: Yes (Death)
  Sender: FDA-Public Use
  Company Number: CL-ROCHE-1897378

PATIENT
  Age: 55 Year
  Sex: Male

DRUGS (2)
  1. ALTEPLASE [Suspect]
     Active Substance: ALTEPLASE
     Indication: ISCHAEMIC STROKE
     Dosage: 10 PERCENT (%) DOSE FOR 2 MINUTES
     Route: 040
  2. ALTEPLASE [Suspect]
     Active Substance: ALTEPLASE
     Dosage: 90% OVER THE FOLLOWING 58 MINUTES
     Route: 042

REACTIONS (1)
  - Cerebral haemorrhage [Fatal]
